FAERS Safety Report 5948415-4 (Version None)
Quarter: 2008Q4

REPORT INFORMATION
  Report Type: 
  Country: None (occurrence: None)
  Receive Date: 20081111
  Receipt Date: 20081106
  Transmission Date: 20090506
  Serious: Yes (Other)
  Sender: FDA-Public Use
  Company Number: B0539157A

PATIENT
  Sex: Male

DRUGS (2)
  1. NIQUITIN CQ GUM 4MG [Suspect]
     Dosage: 15GUM PER DAY
     Route: 002
     Dates: start: 20070601
  2. NIQUITIN CQ GUM 2MG [Suspect]
     Route: 002

REACTIONS (8)
  - DRUG DEPENDENCE [None]
  - DRUG INEFFECTIVE [None]
  - INCORRECT DRUG ADMINISTRATION DURATION [None]
  - LIP PAIN [None]
  - MOUTH ULCERATION [None]
  - PRURITUS [None]
  - RASH [None]
  - RASH PRURITIC [None]
